FAERS Safety Report 6579526-0 (Version None)
Quarter: 2010Q1

REPORT INFORMATION
  Report Type: 
  Country: None (occurrence: None)
  Receive Date: 20100209
  Receipt Date: 20100209
  Transmission Date: 20100710
  Serious: Yes (Disabling)
  Sender: FDA-Public Use
  Company Number: None

PATIENT
  Age: 75 Year
  Sex: Male
  Weight: 90.7194 kg

DRUGS (2)
  1. SIMVASTATIN [Suspect]
     Indication: BLOOD CHOLESTEROL INCREASED
     Dosage: ONE PER DAY PO
     Route: 048
     Dates: start: 20080108, end: 20091001
  2. PRAVASTATIN SODIUM 40MG TAAPO UKN [Suspect]
     Indication: BLOOD CHOLESTEROL INCREASED
     Dosage: ONE PER DAY PO
     Route: 048
     Dates: start: 20091002, end: 20091224

REACTIONS (3)
  - FATIGUE [None]
  - GAIT DISTURBANCE [None]
  - RHABDOMYOLYSIS [None]
